FAERS Safety Report 16714507 (Version 2)
Quarter: 2019Q4

REPORT INFORMATION
  Report Type: Report from Study
  Country: None (occurrence: US)
  Receive Date: 20190819
  Receipt Date: 20191218
  Transmission Date: 20200122
  Serious: Yes (Hospitalization, Other)
  Sender: FDA-Public Use
  Company Number: US-ABBVIE-19K-163-2887656-00

PATIENT
  Age: 68 Year
  Sex: Female
  Weight: 72.64 kg

DRUGS (5)
  1. HUMIRA [Suspect]
     Active Substance: ADALIMUMAB
     Indication: CROHN^S DISEASE
     Dosage: CITRATE FREE
     Route: 058
  2. FLUTICASONE PROPIONATE. [Concomitant]
     Active Substance: FLUTICASONE PROPIONATE
     Indication: SEASONAL ALLERGY
  3. HUMIRA [Suspect]
     Active Substance: ADALIMUMAB
     Indication: COLITIS ULCERATIVE
     Dosage: CITRATE FREE
     Route: 058
  4. HUMIRA [Suspect]
     Active Substance: ADALIMUMAB
     Indication: CROHN^S DISEASE
     Route: 058
     Dates: start: 201504
  5. ALLEGRA [Concomitant]
     Active Substance: FEXOFENADINE HYDROCHLORIDE
     Indication: SEASONAL ALLERGY

REACTIONS (14)
  - Paraesthesia [Unknown]
  - Adverse event [Unknown]
  - Amnesia [Recovering/Resolving]
  - Transient ischaemic attack [Unknown]
  - Transient ischaemic attack [Recovered/Resolved]
  - Mobility decreased [Recovered/Resolved]
  - Tympanic membrane perforation [Unknown]
  - Blood cholesterol increased [Recovering/Resolving]
  - Repetitive speech [Recovered/Resolved]
  - Fatigue [Unknown]
  - Weight decreased [Recovering/Resolving]
  - Ear pain [Unknown]
  - Liver function test abnormal [Unknown]
  - Memory impairment [Unknown]

NARRATIVE: CASE EVENT DATE: 20151116
